FAERS Safety Report 6257479-2 (Version None)
Quarter: 2009Q3

REPORT INFORMATION
  Report Type: 
  Country: None (occurrence: None)
  Receive Date: 20090706
  Receipt Date: 20090623
  Transmission Date: 20100115
  Serious: Yes (Hospitalization)
  Sender: FDA-Public Use
  Company Number: TR-ELI_LILLY_AND_COMPANY-TR200906005250

PATIENT
  Age: 62 Year
  Sex: Male

DRUGS (9)
  1. HUMULIN R [Suspect]
     Indication: DIABETES MELLITUS
     Dosage: 16 U, EACH MORNING
     Route: 058
     Dates: start: 20090428
  2. HUMULIN R [Suspect]
     Dosage: 16 U, NOON
     Route: 058
  3. HUMULIN R [Suspect]
     Dosage: 16 U, EACH EVENING
     Route: 058
  4. HUMULIN N [Suspect]
     Indication: DIABETES MELLITUS
     Dosage: UNK, DAILY (1/D)
     Route: 058
     Dates: start: 20090428
  5. METOPROLOL TARTRATE [Concomitant]
     Dosage: 25 MG, 2/D
  6. DELIX [Concomitant]
     Dosage: 0.5 D/F, DAILY (1/D)
  7. ATORVASTATIN CALCIUM [Concomitant]
     Dosage: 40 MG, DAILY (1/D)
  8. LASIX [Concomitant]
     Dosage: 40 MG, DAILY (1/D)
  9. CLOPIDOGREL SULFATE [Concomitant]
     Dosage: 75 MG, DAILY (1/D)

REACTIONS (2)
  - BLOOD GLUCOSE FLUCTUATION [None]
  - GALLBLADDER OPERATION [None]
